FAERS Safety Report 4533390-X (Version None)
Quarter: 2004Q4

REPORT INFORMATION
  Report Type: 
  Country: None (occurrence: None)
  Receive Date: 20041210
  Receipt Date: 20040817
  Transmission Date: 20050328
  Serious: Yes (Hospitalization)
  Sender: FDA-Public Use
  Company Number: 2004-00369

PATIENT
  Age: 65 Year
  Sex: Male
  Weight: 78.5 kg

DRUGS (1)
  1. VELCADE [Suspect]
     Indication: MULTIPLE MYELOMA
     Dosage: 2.40 MG, IV BOLUS
     Route: 040
     Dates: start: 20040701, end: 20040806

REACTIONS (1)
  - ILEUS [None]
